FAERS Safety Report 12262178 (Version 2)
Quarter: 2016Q3

REPORT INFORMATION
  Report Type: Spontaneous
  Country: JP (occurrence: JP)
  Receive Date: 20160413
  Receipt Date: 20160803
  Transmission Date: 20161109
  Serious: Yes (Death, Hospitalization, Other)
  Sender: FDA-Public Use
  Company Number: JP-GLAXOSMITHKLINE-JP2016JPN048141

PATIENT
  Age: 42 Year
  Sex: Female

DRUGS (2)
  1. FLOLAN [Suspect]
     Active Substance: EPOPROSTENOL SODIUM
     Dosage: 93 UNK, UNK
  2. FLOLAN [Suspect]
     Active Substance: EPOPROSTENOL SODIUM
     Indication: PULMONARY ARTERIAL HYPERTENSION
     Dosage: UNK
     Route: 041
     Dates: start: 2010

REACTIONS (18)
  - Thyrotoxic crisis [Fatal]
  - Goitre [Unknown]
  - Atrial flutter [Unknown]
  - Delirium [Unknown]
  - Crying [Unknown]
  - Hyperthyroidism [Unknown]
  - Depression [Unknown]
  - Intentional self-injury [Unknown]
  - Pyrexia [Unknown]
  - Right ventricular failure [Fatal]
  - Device related infection [Unknown]
  - Tachycardia [Unknown]
  - Aggression [Unknown]
  - Atrial fibrillation [Fatal]
  - Restlessness [Unknown]
  - Suicidal ideation [Unknown]
  - Cardio-respiratory arrest [Fatal]
  - Hypercalcaemia [Unknown]

NARRATIVE: CASE EVENT DATE: 201501
